FAERS Safety Report 5967011-6 (Version None)
Quarter: 2008Q4

REPORT INFORMATION
  Report Type: 
  Country: None (occurrence: None)
  Receive Date: 20081125
  Receipt Date: 20081114
  Transmission Date: 20090506
  Serious: Yes (Hospitalization, Other)
  Sender: FDA-Public Use
  Company Number: US-ELI_LILLY_AND_COMPANY-US200811003459

PATIENT
  Sex: Female

DRUGS (5)
  1. FORTEO [Suspect]
     Indication: OSTEOPOROSIS
     Dosage: 20 UG, DAILY (1/D)
  2. LIPITOR [Concomitant]
     Dosage: 20 MG, DAILY (1/D)
  3. TRANXENE [Concomitant]
     Dosage: 15 MG, AS NEEDED
  4. CALCIUM [Concomitant]
     Dosage: 600 MG, 2/D
  5. VITAMIN D [Concomitant]

REACTIONS (2)
  - FALL [None]
  - PELVIC FRACTURE [None]
